FAERS Safety Report 24147870 (Version 1)
Quarter: 2024Q3

REPORT INFORMATION
  Report Type: Spontaneous
  Country: US (occurrence: None)
  Receive Date: 20240727
  Receipt Date: 20240727
  Transmission Date: 20241016
  Serious: Yes (Other)
  Sender: Public
  Company Number: None

PATIENT
  Age: 13 Year
  Sex: Female
  Weight: 48.6 kg

DRUGS (1)
  1. AVSOLA [Suspect]
     Active Substance: INFLIXIMAB-AXXQ
     Indication: Crohn^s disease
     Dosage: 250 MG Q 8 WEEKS INTRAVENOUS DRIP ?
     Route: 041
     Dates: start: 20230701

REACTIONS (5)
  - Adverse drug reaction [None]
  - Oxygen saturation decreased [None]
  - Dyspnoea [None]
  - Tachycardia [None]
  - Hypotension [None]

NARRATIVE: CASE EVENT DATE: 20240727
